FAERS Safety Report 23136400 (Version 1)
Quarter: 2023Q4

REPORT INFORMATION
  Report Type: Spontaneous
  Country: US (occurrence: US)
  Receive Date: 20231102
  Receipt Date: 20231102
  Transmission Date: 20240110
  Serious: No
  Sender: FDA-Public Use
  Company Number: US-ROCHE-3294404

PATIENT
  Age: 42 Year
  Sex: Female
  Weight: 82.174 kg

DRUGS (12)
  1. ALBUTEROL SULFATE [Suspect]
     Active Substance: ALBUTEROL SULFATE
     Indication: Asthma
     Dosage: 2-3 INHALATIONS (DEPENDING ON THE SEVERITY OF THE COUGH)
     Route: 048
  2. PREDNISONE [Suspect]
     Active Substance: PREDNISONE
     Indication: Inflammation
     Dosage: UNK, QD (END DATE 12 MAR 2023, TAPERED DOSING - 1/2 TABLET)
     Route: 048
     Dates: start: 202303
  3. PREDNISONE [Suspect]
     Active Substance: PREDNISONE
     Dosage: UNK, QD (TAPERED DOSING - 3 PILLS)
     Route: 048
     Dates: start: 202303, end: 202303
  4. PREDNISONE [Suspect]
     Active Substance: PREDNISONE
     Dosage: UNK, QD (TAPERED DOSING - 4 PILLS)
     Route: 048
     Dates: start: 202303, end: 20230312
  5. PREDNISONE [Suspect]
     Active Substance: PREDNISONE
     Dosage: UNK, QD (TAPERED DOSING 2 PILLS)
     Route: 048
     Dates: start: 202303, end: 202303
  6. XOLAIR [Suspect]
     Active Substance: OMALIZUMAB
     Dosage: 300 MG EVERY 4 WEEKS (2 SHOTS,150MG EACH, SELF-INJECTED, IN LOWER STOMACH, ONE ON LEFT AND ONE ON RI
     Route: 058
     Dates: start: 202203
  7. XOLAIR [Suspect]
     Active Substance: OMALIZUMAB
     Dosage: 150 MG, EVERY 4 WEEKS
     Route: 058
     Dates: start: 202203
  8. XOLAIR [Suspect]
     Active Substance: OMALIZUMAB
     Indication: Chronic spontaneous urticaria
     Dosage: UNK
     Route: 058
     Dates: start: 202107
  9. ALBUTEROL [Concomitant]
     Active Substance: ALBUTEROL
     Indication: Asthma
     Dosage: UNK (16 DAYS)
     Route: 065
     Dates: start: 2021
  10. ALBUTEROL [Concomitant]
     Active Substance: ALBUTEROL
     Dosage: UNK (4 HOURS, AS NEEDED)
     Route: 055
  11. ETHINYL ESTRADIOL\NORETHINDRONE ACETATE [Concomitant]
     Active Substance: ETHINYL ESTRADIOL\NORETHINDRONE ACETATE
     Indication: Contraception
     Dosage: 30 MG, QD (1 TABLET DAILY FOR 3 WEEKS, THEN NO MEDICATION FOR 1 WEEK, THEN REPEAT)
     Route: 048
  12. SINGULAIR [Concomitant]
     Active Substance: MONTELUKAST SODIUM
     Indication: Product used for unknown indication
     Dosage: UNK
     Route: 065

REACTIONS (14)
  - Dyspnoea [Not Recovered/Not Resolved]
  - Swelling [Not Recovered/Not Resolved]
  - Cough [Not Recovered/Not Resolved]
  - Wheezing [Recovered/Resolved]
  - Acne cystic [Recovering/Resolving]
  - Vertigo [Not Recovered/Not Resolved]
  - Nausea [Recovered/Resolved]
  - Fatigue [Not Recovered/Not Resolved]
  - Rhinorrhoea [Not Recovered/Not Resolved]
  - Inflammation [Not Recovered/Not Resolved]
  - Anosmia [Not Recovered/Not Resolved]
  - Product dose omission issue [Unknown]
  - Off label use [Unknown]
  - Product availability issue [Unknown]

NARRATIVE: CASE EVENT DATE: 20230101
